FAERS Safety Report 21580402 (Version 1)
Quarter: 2022Q4

REPORT INFORMATION
  Report Type: Spontaneous
  Country: AT (occurrence: AT)
  Receive Date: 20221110
  Receipt Date: 20221110
  Transmission Date: 20230112
  Serious: Yes (Other)
  Sender: FDA-Public Use
  Company Number: AT-STRIDES ARCOLAB LIMITED-2022SP014904

PATIENT
  Age: 5 Year
  Sex: Male

DRUGS (6)
  1. ETOPOSIDE [Suspect]
     Active Substance: ETOPOSIDE
     Indication: Ependymoma
     Dosage: 2600 MILLIGRAM/SQ. METER
     Route: 065
  2. CARBOPLATIN [Suspect]
     Active Substance: CARBOPLATIN
     Indication: Ependymoma
     Dosage: 2800 MILLIGRAM/SQ. METER
     Route: 065
  3. CISPLATIN [Suspect]
     Active Substance: CISPLATIN
     Indication: Ependymoma
     Dosage: 160 MILLIGRAM/SQ. METER
     Route: 065
  4. CYCLOPHOSPHAMIDE [Suspect]
     Active Substance: CYCLOPHOSPHAMIDE
     Indication: Ependymoma
     Dosage: 11.2 GRAM PER SQUARE METRE; (11.2 GRAM)
     Route: 065
  5. VINCRISTINE [Suspect]
     Active Substance: VINCRISTINE
     Indication: Ependymoma
     Dosage: 7.5 MILLIGRAM/SQ. METER
     Route: 065
  6. IFOSFAMIDE [Suspect]
     Active Substance: IFOSFAMIDE
     Indication: Ependymoma
     Dosage: 12 GRAM PER SQUARE METRE; (12 GRAM)
     Route: 065

REACTIONS (2)
  - Renal impairment [Unknown]
  - Off label use [Unknown]
